FAERS Safety Report 15934047 (Version 2)
Quarter: 2019Q2

REPORT INFORMATION
  Report Type: Spontaneous
  Country: US (occurrence: US)
  Receive Date: 20190207
  Receipt Date: 20190401
  Transmission Date: 20190711
  Serious: Yes (Other)
  Sender: FDA-Public Use
  Company Number: US-SA-2019SA032297

PATIENT
  Age: 18 Year
  Sex: Male
  Weight: 56 kg

DRUGS (2)
  1. DUPIXENT [Suspect]
     Active Substance: DUPILUMAB
     Indication: DERMATITIS ATOPIC
     Dosage: UNK
     Route: 058
     Dates: start: 20181221
  2. DUPIXENT [Suspect]
     Active Substance: DUPILUMAB
     Dosage: UNK
     Route: 058
     Dates: start: 20190124, end: 20190201

REACTIONS (6)
  - Eye pruritus [Unknown]
  - Eye swelling [Recovered/Resolved]
  - Eye irritation [Unknown]
  - Ocular hyperaemia [Unknown]
  - Conjunctivitis [Unknown]
  - Vision blurred [Unknown]

NARRATIVE: CASE EVENT DATE: 20190125
